FAERS Safety Report 5487009-4 (Version None)
Quarter: 2007Q4

REPORT INFORMATION
  Report Type: 
  Country: None (occurrence: None)
  Receive Date: 20071012
  Receipt Date: 20071012
  Transmission Date: 20080405
  Serious: No
  Sender: FDA-Public Use
  Company Number: None

PATIENT
  Age: 13 Year
  Sex: Female
  Weight: 42.6381 kg

DRUGS (2)
  1. KENALOG-40 [Suspect]
     Indication: COUGH
     Dosage: 40 MG ONCE IM
     Route: 030
     Dates: start: 20070309, end: 20070309
  2. KENALOG-40 [Suspect]
     Indication: UPPER RESPIRATORY TRACT INFECTION
     Dosage: 40 MG ONCE IM
     Route: 030
     Dates: start: 20070309, end: 20070309

REACTIONS (4)
  - ATROPHY [None]
  - CONTUSION [None]
  - MENSTRUATION IRREGULAR [None]
  - OLIGOMENORRHOEA [None]
